FAERS Safety Report 7237632-1 (Version None)
Quarter: 2011Q1

REPORT INFORMATION
  Report Type: 
  Country: None (occurrence: None)
  Receive Date: 20110121
  Receipt Date: 20110110
  Transmission Date: 20110831
  Serious: Yes (Hospitalization)
  Sender: FDA-Public Use
  Company Number: PHFR2011GB00572

PATIENT
  Sex: Male

DRUGS (4)
  1. HALOPERIDOL [Suspect]
  2. CLOZARIL [Suspect]
     Indication: SCHIZOPHRENIA
     Dosage: 600 MG, QD
     Route: 048
     Dates: start: 20100324
  3. CLOZARIL [Suspect]
     Dosage: 800 MG, QD
     Route: 048
     Dates: start: 20100324
  4. CITALOPRAM [Suspect]

REACTIONS (1)
  - MULTIPLE DRUG OVERDOSE [None]
